FAERS Safety Report 24028090 (Version 2)
Quarter: 2024Q3

REPORT INFORMATION
  Report Type: Spontaneous
  Country: US (occurrence: US)
  Receive Date: 20240628
  Receipt Date: 20240806
  Transmission Date: 20241017
  Serious: Yes (Other)
  Sender: JOHNSON AND JOHNSON
  Company Number: US-JNJFOC-20240659031

PATIENT
  Age: 57 Year
  Sex: Male
  Weight: 94.8 kg

DRUGS (5)
  1. UPTRAVI [Suspect]
     Active Substance: SELEXIPAG
     Indication: Pulmonary arterial hypertension
     Route: 065
     Dates: start: 202107
  2. AMBRISENTAN [Suspect]
     Active Substance: AMBRISENTAN
     Indication: Pulmonary arterial hypertension
     Route: 065
     Dates: start: 201801
  3. TADALAFIL [Concomitant]
     Active Substance: TADALAFIL
  4. COUMADIN [Concomitant]
     Active Substance: WARFARIN SODIUM
  5. NEXIUM [Concomitant]
     Active Substance: ESOMEPRAZOLE MAGNESIUM

REACTIONS (3)
  - Bendopnoea [Unknown]
  - Dyspnoea exertional [Unknown]
  - Peripheral swelling [Unknown]
